FAERS Safety Report 4984233-1 (Version None)
Quarter: 2006Q2

REPORT INFORMATION
  Report Type: 
  Country: None (occurrence: None)
  Receive Date: 20060420
  Receipt Date: 20060326
  Transmission Date: 20061013
  Serious: Yes (Other)
  Sender: FDA-Public Use
  Company Number: 060327-0000291

PATIENT

DRUGS (1)
  1. INDOMETHACIN [Suspect]
     Indication: PATENT DUCTUS ARTERIOSUS
     Dosage: 0.2 MG/KG; 24HR; INTERVALS; IV
     Route: 042

REACTIONS (4)
  - BLOOD CREATININE INCREASED [None]
  - BLOOD UREA INCREASED [None]
  - CONVULSION [None]
  - INTRAVENTRICULAR HAEMORRHAGE [None]
